FAERS Safety Report 7055155-X (Version None)
Quarter: 2010Q4

REPORT INFORMATION
  Report Type: 
  Country: None (occurrence: None)
  Receive Date: 20101021
  Receipt Date: 20101008
  Transmission Date: 20110411
  Serious: Yes (Hospitalization)
  Sender: FDA-Public Use
  Company Number: PHHY2010AU67592

PATIENT
  Sex: Male

DRUGS (7)
  1. ACLASTA [Suspect]
     Dosage: 5MG /100ML
     Route: 042
     Dates: start: 20100430
  2. ASPIRIN [Concomitant]
     Dosage: 100 MG DAILY
     Route: 048
  3. OSTEVITE D [Concomitant]
     Dosage: BD
  4. SERENACE [Concomitant]
     Dosage: 500 MG BD
  5. NEO-CYTAMEN [Concomitant]
     Dosage: 3 MONTHLY
  6. COLOXYL WITH SENNA [Concomitant]
     Dosage: BD
  7. VENTOLIN [Concomitant]
     Dosage: 5 MG QID

REACTIONS (6)
  - ATRIAL FIBRILLATION [None]
  - BODY TEMPERATURE INCREASED [None]
  - DYSPHAGIA [None]
  - HEART RATE INCREASED [None]
  - MALAISE [None]
  - WEIGHT BEARING DIFFICULTY [None]
